FAERS Safety Report 15160774 (Version 1)
Quarter: 2018Q3

REPORT INFORMATION
  Report Type: Spontaneous
  Country: HU (occurrence: HU)
  Receive Date: 20180718
  Receipt Date: 20180718
  Transmission Date: 20181010
  Serious: Yes (Hospitalization)
  Sender: FDA-Public Use
  Company Number: HU-009507513-1807HUN007359

PATIENT
  Sex: Male

DRUGS (1)
  1. KEYTRUDA [Suspect]
     Active Substance: PEMBROLIZUMAB
     Indication: MALIGNANT URINARY TRACT NEOPLASM
     Dosage: UNK
     Dates: start: 201805, end: 201806

REACTIONS (1)
  - Rash vesicular [Recovered/Resolved]

NARRATIVE: CASE EVENT DATE: 2018
